FAERS Safety Report 5132723-3 (Version None)
Quarter: 2006Q4

REPORT INFORMATION
  Report Type: 
  Country: None (occurrence: None)
  Receive Date: 20061023
  Receipt Date: 20060925
  Transmission Date: 20070319
  Serious: Yes (Other)
  Sender: FDA-Public Use
  Company Number: RU-GLAXOSMITHKLINE-B0440435A

PATIENT
  Age: 44 Year
  Sex: Female

DRUGS (3)
  1. FLIXOTIDE [Suspect]
     Indication: ASTHMA
     Route: 055
     Dates: start: 20060913, end: 20060914
  2. RIBOXIN [Concomitant]
     Dosage: .6G PER DAY
     Route: 065
  3. PREDUCTAL [Concomitant]
     Dosage: 40MG PER DAY
     Route: 065

REACTIONS (6)
  - ANAEMIA [None]
  - BACK PAIN [None]
  - CHEST PAIN [None]
  - DRUG INEFFECTIVE [None]
  - PHARMACEUTICAL PRODUCT COMPLAINT [None]
  - TACHYCARDIA [None]
